FAERS Safety Report 15969064 (Version 2)
Quarter: 2019Q2

REPORT INFORMATION
  Report Type: Report from Study
  Country: US (occurrence: US)
  Receive Date: 20190215
  Receipt Date: 20190508
  Transmission Date: 20190711
  Serious: Yes (Hospitalization, Other)
  Sender: FDA-Public Use
  Company Number: US-BIOGEN-2019BI00694751

PATIENT
  Age: 61 Year
  Sex: Male

DRUGS (1)
  1. TECFIDERA [Suspect]
     Active Substance: DIMETHYL FUMARATE
     Indication: MULTIPLE SCLEROSIS
     Dosage: MAINTENANCE DOSE
     Route: 050
     Dates: start: 20141009

REACTIONS (8)
  - Accident [Recovered/Resolved]
  - Asthenia [Unknown]
  - Mobility decreased [Unknown]
  - Skin ulcer [Unknown]
  - Peroneal nerve palsy [Unknown]
  - Rhabdomyolysis [Unknown]
  - Memory impairment [Unknown]
  - Fall [Recovered/Resolved]

NARRATIVE: CASE EVENT DATE: 201712
